FAERS Safety Report 6701027-7 (Version None)
Quarter: 2010Q2

REPORT INFORMATION
  Report Type: 
  Country: None (occurrence: None)
  Receive Date: 20100428
  Receipt Date: 20100415
  Transmission Date: 20101027
  Serious: Yes (Disabling)
  Sender: FDA-Public Use
  Company Number: US-ELI_LILLY_AND_COMPANY-US201004006829

PATIENT
  Sex: Female

DRUGS (5)
  1. CYMBALTA [Suspect]
     Indication: FIBROMYALGIA
     Dosage: 60 MG, UNK
     Dates: start: 20020101, end: 20061101
  2. CYMBALTA [Suspect]
     Dosage: 60 MG, UNK
     Dates: start: 20071001
  3. PAXIL [Concomitant]
     Dosage: 40 MG, UNK
  4. ROXICODONE [Concomitant]
     Dosage: 30 MG, UNK
  5. ALLEGRA [Concomitant]
     Dosage: 180 MG, UNK

REACTIONS (9)
  - DRUG EXPOSURE DURING PREGNANCY [None]
  - DRUG WITHDRAWAL SYNDROME [None]
  - FATIGUE [None]
  - HALLUCINATION [None]
  - INJURY [None]
  - INTERVERTEBRAL DISC OPERATION [None]
  - PREGNANCY [None]
  - UNEVALUABLE EVENT [None]
  - VISION BLURRED [None]
